FAERS Safety Report 10445888 (Version 1)
Quarter: 2014Q3

REPORT INFORMATION
  Report Type: Spontaneous
  Country: GB (occurrence: GB)
  Receive Date: 20140910
  Receipt Date: 20140910
  Transmission Date: 20150326
  Serious: Yes (Life-Threatening, Hospitalization, Other)
  Sender: FDA-Public Use
  Company Number: GB-PFIZER INC-2014252037

PATIENT
  Age: 60 Year
  Sex: Female

DRUGS (5)
  1. LATANOPROST. [Concomitant]
     Active Substance: LATANOPROST
     Route: 031
  2. CARBIMAZOLE [Concomitant]
     Active Substance: CARBIMAZOLE
  3. PROPRANOLOL [Concomitant]
     Active Substance: PROPRANOLOL\PROPRANOLOL HYDROCHLORIDE
     Indication: BASEDOW^S DISEASE
  4. METHYLPREDNISOLONE SODIUM SUCCINATE. [Suspect]
     Active Substance: METHYLPREDNISOLONE SODIUM SUCCINATE
     Indication: BASEDOW^S DISEASE
     Dosage: 500MGS ONCE WEEKLY FOR 6 WEEKS
     Route: 042
     Dates: start: 20140710, end: 20140821
  5. ALENDRONIC ACID [Concomitant]
     Active Substance: ALENDRONIC ACID

REACTIONS (4)
  - Malignant hypertension [Recovering/Resolving]
  - Hypertensive encephalopathy [Recovering/Resolving]
  - Muscle rigidity [Unknown]
  - Convulsion [Unknown]

NARRATIVE: CASE EVENT DATE: 20140821
